FAERS Safety Report 6084595-0 (Version None)
Quarter: 2009Q1

REPORT INFORMATION
  Report Type: 
  Country: None (occurrence: None)
  Receive Date: 20090219
  Receipt Date: 20090213
  Transmission Date: 20090719
  Serious: No
  Sender: FDA-Public Use
  Company Number: US-B.I. PHARMACEUTICALS,INC./RIDGEFIELD-2009-BP-01967BP

PATIENT
  Sex: Female

DRUGS (13)
  1. SPIRIVA [Suspect]
     Indication: ASTHMA
     Dosage: 18MCG
     Route: 055
     Dates: start: 20081101
  2. AMITRIPTYLINE [Concomitant]
     Indication: INSOMNIA
  3. FLONASE [Concomitant]
     Indication: ASTHMA
  4. IBUPROFEN TABLETS [Concomitant]
     Indication: BACK PAIN
  5. HYDROXY HCL [Concomitant]
     Indication: PRURITUS
  6. TRAMCINOLON [Concomitant]
     Indication: PRURITUS
  7. LISINOPRIL [Concomitant]
     Indication: HYPERTENSION
  8. DILT-XR [Concomitant]
     Indication: HYPERTENSION
  9. LIPITOR [Concomitant]
     Indication: HYPERTHYROIDISM
  10. SINGULAIR [Concomitant]
     Indication: ASTHMA
  11. ALBUTEROL [Concomitant]
     Indication: ASTHMA
  12. PROVENTIL [Concomitant]
     Indication: ASTHMA
  13. GENERIC FLEXERIL [Concomitant]
     Indication: INSOMNIA

REACTIONS (1)
  - DRUG INEFFECTIVE [None]
